FAERS Safety Report 18314455 (Version 1)
Quarter: 2020Q3

REPORT INFORMATION
  Report Type: Spontaneous
  Country: US (occurrence: US)
  Receive Date: 20200926
  Receipt Date: 20200926
  Transmission Date: 20201103
  Serious: No
  Sender: FDA-Public Use
  Company Number: US-009507513-2009USA008141

PATIENT
  Age: 81 Year
  Sex: Male

DRUGS (2)
  1. DULERA [Suspect]
     Active Substance: FORMOTEROL FUMARATE DIHYDRATE\MOMETASONE FUROATE
     Indication: BRONCHITIS CHRONIC
     Dosage: UNK, QD
  2. DULERA [Suspect]
     Active Substance: FORMOTEROL FUMARATE DIHYDRATE\MOMETASONE FUROATE
     Indication: BRONCHITIS CHRONIC
     Dosage: STRENGTH 100 MICROGRAM/5 MICROGRAM 120 DOSE
     Dates: start: 20200715

REACTIONS (5)
  - Product prescribing issue [Unknown]
  - Device malfunction [Unknown]
  - Poor quality device used [Unknown]
  - Product use in unapproved indication [Unknown]
  - Intentional product misuse [Unknown]

NARRATIVE: CASE EVENT DATE: 20200715
